FAERS Safety Report 4994548-9 (Version None)
Quarter: 2006Q2

REPORT INFORMATION
  Report Type: 
  Country: None (occurrence: None)
  Receive Date: 20060505
  Receipt Date: 20050919
  Transmission Date: 20061013
  Serious: Yes (Disabling)
  Sender: FDA-Public Use
  Company Number: US-MERCK-0509USA02839

PATIENT
  Age: 52 Year
  Sex: Male

DRUGS (8)
  1. VIOXX [Suspect]
     Indication: ARTHROPATHY
     Route: 048
     Dates: start: 19990101, end: 20040101
  2. VIOXX [Suspect]
     Indication: INFLAMMATION
     Route: 048
     Dates: start: 19990101, end: 20040101
  3. BEXTRA [Suspect]
     Route: 065
  4. CELEBREX [Suspect]
     Route: 065
  5. DEPAKOTE [Concomitant]
     Route: 065
  6. ELAVIL [Concomitant]
     Route: 065
  7. NEURONTIN [Concomitant]
     Route: 065
  8. PLAVIX [Concomitant]
     Route: 065

REACTIONS (4)
  - CEREBROVASCULAR ACCIDENT [None]
  - INJURY [None]
  - SPINAL CORD DISORDER [None]
  - VERTEBRAL INJURY [None]
